FAERS Safety Report 12641683 (Version 1)
Quarter: 2016Q3

REPORT INFORMATION
  Report Type: Spontaneous
  Country: US (occurrence: US)
  Receive Date: 20160810
  Receipt Date: 20160810
  Transmission Date: 20161109
  Serious: No
  Sender: FDA-Public Use
  Company Number: US-ACTAVIS-2016-14546

PATIENT
  Sex: Female

DRUGS (1)
  1. CLOTRIMAZOLE (AMALLC) [Suspect]
     Active Substance: CLOTRIMAZOLE
     Indication: VULVOVAGINAL BURNING SENSATION
     Dosage: UNK UNK, UNKNOWN
     Route: 067

REACTIONS (1)
  - Drug ineffective [Unknown]
